FAERS Safety Report 23088292 (Version 1)
Quarter: 2023Q4

REPORT INFORMATION
  Report Type: Spontaneous
  Country: CZ (occurrence: CZ)
  Receive Date: 20231020
  Receipt Date: 20231020
  Transmission Date: 20240110
  Serious: Yes (Hospitalization)
  Sender: FDA-Public Use
  Company Number: CZ-002147023-NVSC2023CZ221843

PATIENT
  Sex: Female

DRUGS (2)
  1. TAFINLAR [Suspect]
     Active Substance: DABRAFENIB MESYLATE
     Indication: Nodular melanoma
     Dosage: UNK
     Route: 065
     Dates: start: 202004, end: 20221122
  2. MEKINIST [Suspect]
     Active Substance: TRAMETINIB DIMETHYL SULFOXIDE
     Indication: Nodular melanoma
     Dosage: UNK
     Route: 065
     Dates: start: 202004, end: 20221122

REACTIONS (11)
  - Myocardial ischaemia [Unknown]
  - Acute myocardial infarction [Unknown]
  - Coronary artery occlusion [Unknown]
  - Coronary artery stenosis [Unknown]
  - Cardiac disorder [Unknown]
  - Systolic dysfunction [Unknown]
  - Ejection fraction decreased [Unknown]
  - Cardiac perfusion defect [Unknown]
  - Pyrexia [Unknown]
  - Fatigue [Unknown]
  - Alopecia [Unknown]

NARRATIVE: CASE EVENT DATE: 20221122
